FAERS Safety Report 15401558 (Version 1)
Quarter: 2018Q3

REPORT INFORMATION
  Report Type: Spontaneous
  Country: US (occurrence: US)
  Receive Date: 20180914
  Receipt Date: 20180914
  Transmission Date: 20181010
  Serious: Yes (Other)
  Sender: FDA-Public Use
  Company Number: None

PATIENT
  Age: 36 Year
  Sex: Female

DRUGS (6)
  1. PREDNISONE 5MG [Concomitant]
     Active Substance: PREDNISONE
  2. OMNITROPE [Suspect]
     Active Substance: SOMATROPIN
     Indication: HYPOPITUITARISM
     Route: 058
     Dates: start: 20150917
  3. LEVOXYL 125MCG [Concomitant]
  4. ISIBLOOM 0.15?30 [Concomitant]
  5. ZOLPIDEM [Concomitant]
     Active Substance: ZOLPIDEM\ZOLPIDEM TARTRATE
  6. DESMOPRESSIN 0.2MG [Concomitant]
     Active Substance: DESMOPRESSIN

REACTIONS (2)
  - Meningioma malignant [None]
  - Therapy cessation [None]

NARRATIVE: CASE EVENT DATE: 20180630
